FAERS Safety Report 7168034-4 (Version None)
Quarter: 2010Q4

REPORT INFORMATION
  Report Type: 
  Country: None (occurrence: None)
  Receive Date: 20101202
  Receipt Date: 20101118
  Transmission Date: 20110411
  Serious: Yes (Other)
  Sender: FDA-Public Use
  Company Number: 10-509

PATIENT
  Age: 57 Year
  Sex: Male

DRUGS (3)
  1. ALEVE [Suspect]
     Indication: ARTHRALGIA
     Dates: start: 20100101
  2. ALEVE [Suspect]
     Indication: ARTHRALGIA
     Dosage: 440 MG/DAY, ORAL
     Route: 048
     Dates: start: 20101104
  3. HIGH BLOOD PRESSURE PILL [Concomitant]

REACTIONS (2)
  - EPISTAXIS [None]
  - NASAL ULCER [None]
